FAERS Safety Report 8340447-4 (Version None)
Quarter: 2012Q2

REPORT INFORMATION
  Report Type: 
  Country: None (occurrence: None)
  Receive Date: 20120507
  Receipt Date: 20090615
  Transmission Date: 20120825
  Serious: Yes (Hospitalization)
  Sender: FDA-Public Use
  Company Number: US-TEVA-2009007342

PATIENT
  Sex: Male

DRUGS (3)
  1. RITUXIMAB [Suspect]
     Route: 042
  2. TREANDA [Suspect]
     Route: 042
  3. VELCADE [Suspect]
     Route: 042

REACTIONS (4)
  - PNEUMONIA [None]
  - FEBRILE NEUTROPENIA [None]
  - PLATELET COUNT DECREASED [None]
  - DIARRHOEA [None]
